FAERS Safety Report 23669711 (Version 4)
Quarter: 2025Q3

REPORT INFORMATION
  Report Type: Spontaneous
  Country: IN (occurrence: IN)
  Receive Date: 20240325
  Receipt Date: 20250929
  Transmission Date: 20251020
  Serious: Yes (Other)
  Sender: PFIZER
  Company Number: IN-PFIZER INC-2021373839

PATIENT
  Age: 52 Year
  Sex: Female
  Weight: 65 kg

DRUGS (7)
  1. PALBOCICLIB [Suspect]
     Active Substance: PALBOCICLIB
     Indication: Breast cancer metastatic
     Route: 048
     Dates: start: 20200721
  2. PALBOCICLIB [Suspect]
     Active Substance: PALBOCICLIB
     Dates: start: 20200825
  3. PALBOCICLIB [Suspect]
     Active Substance: PALBOCICLIB
     Route: 048
  4. PALBOCICLIB [Suspect]
     Active Substance: PALBOCICLIB
     Route: 048
  5. LETROZOLE [Concomitant]
     Active Substance: LETROZOLE
  6. LETROZOLE [Concomitant]
     Active Substance: LETROZOLE
     Dates: start: 20200825
  7. LETROZOLE [Concomitant]
     Active Substance: LETROZOLE

REACTIONS (6)
  - Blood pressure diastolic decreased [Unknown]
  - Blood pressure systolic increased [Unknown]
  - Blood thyroid stimulating hormone increased [Unknown]
  - Full blood count decreased [Unknown]
  - Heart rate increased [Unknown]
  - Off label use [Unknown]
